FAERS Safety Report 11323553 (Version 1)
Quarter: 2015Q3

REPORT INFORMATION
  Report Type: Spontaneous
  Country: US (occurrence: None)
  Receive Date: 20150729
  Receipt Date: 20150729
  Transmission Date: 20151125
  Serious: Yes (Hospitalization)
  Sender: FDA-Public Use
  Company Number: None

PATIENT
  Age: 60 Year
  Sex: Female

DRUGS (13)
  1. AMLODIPINE [Concomitant]
     Active Substance: AMLODIPINE BESYLATE
  2. INSULIN ASPART [Concomitant]
     Active Substance: INSULIN ASPART
  3. PIPERACILLIN/TAZOBACTAM [Concomitant]
     Active Substance: PIPERACILLIN SODIUM\TAZOBACTAM SODIUM
  4. ACYCLOVIR. [Concomitant]
     Active Substance: ACYCLOVIR
  5. FENTANYL. [Concomitant]
     Active Substance: FENTANYL
  6. ACETAMINOPHEN. [Concomitant]
     Active Substance: ACETAMINOPHEN
  7. LACOSAMIDE [Concomitant]
     Active Substance: LACOSAMIDE
  8. CLOBAZAM [Concomitant]
     Active Substance: CLOBAZAM
  9. SIMVASTATIN. [Concomitant]
     Active Substance: SIMVASTATIN
  10. THIAMINE. [Concomitant]
     Active Substance: THIAMINE
  11. VANCOMYCIN [Concomitant]
     Active Substance: VANCOMYCIN
  12. PROPOFOL. [Suspect]
     Active Substance: PROPOFOL
     Indication: SEDATION
     Dosage: 20 - 80 MCG/KG/MIN  CONTINUOUS IV
     Route: 042
     Dates: start: 20150306, end: 20150310
  13. LEVETIRACETAM. [Concomitant]
     Active Substance: LEVETIRACETAM

REACTIONS (1)
  - Blood triglycerides increased [None]

NARRATIVE: CASE EVENT DATE: 20150310
